FAERS Safety Report 17474479 (Version 1)
Quarter: 2020Q1

REPORT INFORMATION
  Report Type: Spontaneous
  Country: FR (occurrence: FR)
  Receive Date: 20200225
  Receipt Date: 20200225
  Transmission Date: 20200409
  Serious: Yes (Other)
  Sender: FDA-Public Use
  Company Number: FR-AMGEN-FRASP2020029055

PATIENT
  Sex: Female

DRUGS (1)
  1. MIMPARA [Suspect]
     Active Substance: CINACALCET HYDROCHLORIDE
     Indication: PRIMARY HYPERCHOLESTEROLAEMIA
     Dosage: 30 MILLIGRAM
     Route: 065

REACTIONS (4)
  - Lung neoplasm malignant [Unknown]
  - Abdominal pain [Unknown]
  - Blood calcium increased [Unknown]
  - Off label use [Unknown]
